FAERS Safety Report 7767355-1 (Version None)
Quarter: 2011Q3

REPORT INFORMATION
  Report Type: 
  Country: None (occurrence: None)
  Receive Date: 20110922
  Receipt Date: 20100816
  Transmission Date: 20111222
  Serious: No
  Sender: FDA-Public Use
  Company Number: US-ASTRAZENECA-2007UW12086

PATIENT
  Age: 18511 Day
  Sex: Female
  Weight: 102.5 kg

DRUGS (13)
  1. LEXAPRO [Concomitant]
     Indication: INSOMNIA
  2. GABAPENTIN [Concomitant]
     Indication: CONVULSION
  3. TRAZODONE HYDROCHLORIDE [Concomitant]
     Indication: INSOMNIA
  4. PLAVIX [Concomitant]
     Indication: BLOOD CHOLESTEROL INCREASED
  5. GEODON [Concomitant]
     Dates: start: 20100101
  6. ABILIFY [Concomitant]
     Dates: start: 20050101, end: 20050101
  7. SEROQUEL [Suspect]
     Indication: DEPRESSION
     Route: 048
     Dates: start: 20010101, end: 20060101
  8. SEROQUEL [Suspect]
     Indication: SCHIZOPHRENIA
     Route: 048
     Dates: start: 20010101, end: 20060101
  9. CRESTOR [Concomitant]
     Indication: BLOOD TRIGLYCERIDES INCREASED
     Dates: start: 20050101
  10. PLAVIX [Concomitant]
     Indication: HYPERLIPIDAEMIA
  11. CLOZAPINE [Concomitant]
     Dates: start: 20030101
  12. SEROQUEL [Suspect]
     Indication: BIPOLAR DISORDER
     Route: 048
     Dates: start: 20010101, end: 20060101
  13. THORAZINE [Concomitant]
     Dates: start: 20000101

REACTIONS (7)
  - BLOOD CHOLESTEROL INCREASED [None]
  - OBESITY [None]
  - DIABETES MELLITUS [None]
  - BLOOD TRIGLYCERIDES INCREASED [None]
  - TYPE 1 DIABETES MELLITUS [None]
  - TYPE 2 DIABETES MELLITUS [None]
  - HYPERLIPIDAEMIA [None]
